FAERS Safety Report 5128808-8 (Version None)
Quarter: 2006Q4

REPORT INFORMATION
  Report Type: 
  Country: None (occurrence: None)
  Receive Date: 20061011
  Receipt Date: 20061006
  Transmission Date: 20070319
  Serious: Yes (Disabling)
  Sender: FDA-Public Use
  Company Number: 2006AL002109

PATIENT
  Age: 67 Year
  Sex: Female

DRUGS (8)
  1. GABAPENTIN [Suspect]
     Indication: FIBROMYALGIA
     Dosage: 100 MG; QD; PO
     Route: 048
     Dates: start: 20051201, end: 20051201
  2. ARMOUR THYROID [Concomitant]
  3. GLUCOVANCE [Concomitant]
  4. DARVOCET [Concomitant]
  5. ASPIRIN [Concomitant]
  6. DOXEPIN HCL [Concomitant]
  7. SOMA [Concomitant]
  8. OTC VITAMINS [Concomitant]

REACTIONS (24)
  - ABDOMINAL DISTENSION [None]
  - ASTHENIA [None]
  - COUGH [None]
  - DEHYDRATION [None]
  - DIARRHOEA [None]
  - DIZZINESS [None]
  - DRY SKIN [None]
  - ERYTHEMA [None]
  - FALL [None]
  - FLASHBACK [None]
  - FLUID INTAKE REDUCED [None]
  - GASTRIC DILATATION [None]
  - GASTRIC DISORDER [None]
  - HYPOAESTHESIA [None]
  - MENTAL IMPAIRMENT [None]
  - MUSCULOSKELETAL DISCOMFORT [None]
  - MUSCULOSKELETAL DISORDER [None]
  - ORAL INTAKE REDUCED [None]
  - PAIN [None]
  - RASH [None]
  - SKIN EXFOLIATION [None]
  - SNEEZING [None]
  - VISUAL ACUITY REDUCED [None]
  - VOMITING [None]
